FAERS Safety Report 4407126-7 (Version None)
Quarter: 2004Q3

REPORT INFORMATION
  Report Type: 
  Country: None (occurrence: None)
  Receive Date: 20040721
  Receipt Date: 20040709
  Transmission Date: 20050211
  Serious: Yes (Death)
  Sender: FDA-Public Use
  Company Number: US-JNJFOC-20040702860

PATIENT
  Age: 76 Year
  Sex: Female

DRUGS (6)
  1. INFLIXIMAB (INFLIXIMAB, RECOMBINANT) LYOPHILIZED POWDER [Suspect]
     Indication: RHEUMATOID ARTHRITIS
     Dosage: INTRAVENOUS
     Route: 042
     Dates: start: 20041019, end: 20020125
  2. METHOTREXATE [Concomitant]
  3. PREDNISONE [Concomitant]
  4. FOLIC ACID [Concomitant]
  5. ANTIHYPERTENSIVE [Concomitant]
  6. GLYBURIDE [Concomitant]

REACTIONS (1)
  - DEATH [None]
